FAERS Safety Report 6303958-9 (Version None)
Quarter: 2009Q3

REPORT INFORMATION
  Report Type: 
  Country: None (occurrence: None)
  Receive Date: 20090810
  Receipt Date: 20090810
  Transmission Date: 20100115
  Serious: Yes (Hospitalization)
  Sender: FDA-Public Use
  Company Number: None

PATIENT
  Age: 78 Year
  Sex: Female
  Weight: 77 kg

DRUGS (10)
  1. LISINOPRIL [Suspect]
     Indication: HYPERTENSION
     Dosage: 10 MG DAILY PO PRIOR TO ADMISSION
     Route: 048
  2. FUROSEMIDE 20 MG [Suspect]
     Indication: HYPERTENSION
     Dosage: 20 MG ALTERNATE WITH 40 MG DAILY PO PRIOR TO ADMISSION
     Route: 048
  3. ASPART INSULIN [Concomitant]
  4. METOPROLOL [Concomitant]
  5. CLOPIDOGREL [Concomitant]
  6. ATORVASTATIN [Concomitant]
  7. PREGABALIN [Concomitant]
  8. OMEPRAZOLE [Concomitant]
  9. FENOFIBRATE [Concomitant]
  10. LANTUS [Concomitant]

REACTIONS (5)
  - ASTHENIA [None]
  - CARDIAC FAILURE CONGESTIVE [None]
  - HYPOVOLAEMIA [None]
  - MENTAL STATUS CHANGES [None]
  - RENAL FAILURE ACUTE [None]
